FAERS Safety Report 4560973-3 (Version None)
Quarter: 2005Q1

REPORT INFORMATION
  Report Type: 
  Country: None (occurrence: None)
  Receive Date: 20050126
  Receipt Date: 20030420
  Transmission Date: 20050727
  Serious: No
  Sender: FDA-Public Use
  Company Number: US-BRISTOL-MYERS SQUIBB COMPANY-12565461

PATIENT
  Age: 60 Year
  Sex: Female
  Weight: 77 kg

DRUGS (8)
  1. GLUCOPHAGE [Suspect]
     Indication: DIABETES MELLITUS
     Dosage: DURATION OF THERAPY:  ^YEARS^
     Route: 048
     Dates: end: 20040416
  2. GLUCOTROL [Concomitant]
  3. ACTOS [Concomitant]
  4. ATIVAN [Concomitant]
  5. SINEQUAN [Concomitant]
  6. PROZAC [Concomitant]
  7. SYNTHROID [Concomitant]
  8. CARDIZEM [Concomitant]

REACTIONS (1)
  - BLOOD GLUCOSE INCREASED [None]
